FAERS Safety Report 8087266 (Version 5)
Quarter: 2014Q2

REPORT INFORMATION
  Report Type: Report from Study
  Country: US (occurrence: US)
  Receive Date: 20110812
  Receipt Date: 20140611
  Transmission Date: 20141212
  Serious: Yes (Other)
  Sender: FDA-Public Use
  Company Number: US-BIOGENIDEC-2011BI029420

PATIENT
  Age: 47 Year
  Sex: Female

DRUGS (2)
  1. AVONEX [Suspect]
     Indication: MULTIPLE SCLEROSIS
     Route: 030
     Dates: start: 20110109, end: 201211
  2. AVONEX [Suspect]
     Indication: MULTIPLE SCLEROSIS
     Route: 030
     Dates: start: 201211, end: 20140427

REACTIONS (16)
  - Bladder cancer [Recovered/Resolved]
  - Knee arthroplasty [Recovered/Resolved]
  - Blood urine present [Recovered/Resolved]
  - Onychoclasis [Recovered/Resolved]
  - Nasal congestion [Recovered/Resolved]
  - Abnormal loss of weight [Not Recovered/Not Resolved]
  - Lymphadenopathy [Not Recovered/Not Resolved]
  - Stress [Unknown]
  - Cognitive disorder [Not Recovered/Not Resolved]
  - Pruritus generalised [Recovered/Resolved]
  - Multiple sclerosis relapse [Recovered/Resolved]
  - Fatigue [Recovered/Resolved]
  - Headache [Recovered/Resolved]
  - Pyrexia [Recovered/Resolved]
  - Night sweats [Unknown]
  - Hypersensitivity [Not Recovered/Not Resolved]
